FAERS Safety Report 4945319-0 (Version None)
Quarter: 2006Q1

REPORT INFORMATION
  Report Type: 
  Country: None (occurrence: None)
  Receive Date: 20060315
  Receipt Date: 20060315
  Transmission Date: 20060701
  Serious: No
  Sender: FDA-Public Use
  Company Number: None

PATIENT
  Age: 46 Year
  Sex: Male
  Weight: 66.2252 kg

DRUGS (1)
  1. AMBIEN [Suspect]
     Indication: DRUG THERAPY
     Dosage: 10 MG ONCE PO
     Route: 048
     Dates: start: 20000601, end: 20000601

REACTIONS (3)
  - ABNORMAL BEHAVIOUR [None]
  - AMNESIA [None]
  - MENTAL IMPAIRMENT [None]
